FAERS Safety Report 11359965 (Version 1)
Quarter: 2015Q3

REPORT INFORMATION
  Report Type: Spontaneous
  Country: US (occurrence: US)
  Receive Date: 20150810
  Receipt Date: 20150810
  Transmission Date: 20151125
  Serious: Yes (Other)
  Sender: FDA-Public Use
  Company Number: US-BEH-2015052794

PATIENT
  Sex: Female
  Weight: 84 kg

DRUGS (23)
  1. EPIPEN [Concomitant]
     Active Substance: EPINEPHRINE
     Indication: ANAPHYLACTIC REACTION
  2. DIPHENHYDRAMINE. [Concomitant]
     Active Substance: DIPHENHYDRAMINE
     Indication: ANAPHYLACTIC REACTION
  3. SIMETHICONE (DIMETHICONE) [Concomitant]
     Active Substance: DIMETHICONE
  4. DOCUSATE [Concomitant]
     Active Substance: DOCUSATE
  5. PROVERA [Suspect]
     Active Substance: MEDROXYPROGESTERONE ACETATE
  6. LMX [Concomitant]
     Active Substance: LIDOCAINE
  7. ENOXAPARIN [Concomitant]
     Active Substance: ENOXAPARIN
     Dosage: INJECTION EVERY 12 HOURS
  8. ACIDOPHILUS [Concomitant]
     Active Substance: LACTOBACILLUS ACIDOPHILUS
  9. DYMISTA [Concomitant]
     Active Substance: AZELASTINE HYDROCHLORIDE\FLUTICASONE PROPIONATE
  10. ENABLEX [Concomitant]
     Active Substance: DARIFENACIN\DARIFENACIN HYDROBROMIDE
  11. TRIAMTERENE. [Concomitant]
     Active Substance: TRIAMTERENE
  12. POTASSIUM [Concomitant]
     Active Substance: POTASSIUM
  13. HIZENTRA [Suspect]
     Active Substance: HUMAN IMMUNOGLOBULIN G
     Indication: IMMUNODEFICIENCY COMMON VARIABLE
     Dosage: 4 GM 20 ML VIAL
     Route: 058
  14. MACROBID [Concomitant]
     Active Substance: NITROFURANTOIN\NITROFURANTOIN MONOHYDRATE
  15. EXCEDRIN [Concomitant]
     Active Substance: ACETAMINOPHEN\ASPIRIN\CAFFEINE
  16. LISINOPRIL. [Concomitant]
     Active Substance: LISINOPRIL
  17. CALCIUM [Concomitant]
     Active Substance: CALCIUM
  18. PREMARIN [Suspect]
     Active Substance: ESTROGENS, CONJUGATED
  19. NORCO [Concomitant]
     Active Substance: ACETAMINOPHEN\HYDROCODONE BITARTRATE
  20. CLARINEX [Concomitant]
     Active Substance: DESLORATADINE
  21. TRIAMCINOLONE [Concomitant]
     Active Substance: TRIAMCINOLONE
  22. DYMISTA [Concomitant]
     Active Substance: AZELASTINE HYDROCHLORIDE\FLUTICASONE PROPIONATE
  23. VALIUM [Concomitant]
     Active Substance: DIAZEPAM

REACTIONS (1)
  - Thrombosis [Unknown]
